FAERS Safety Report 18172171 (Version 15)
Quarter: 2022Q1

REPORT INFORMATION
  Report Type: Other
  Country: FR (occurrence: None)
  Receive Date: 20200820
  Receipt Date: 20220312
  Transmission Date: 20220423
  Serious: Yes (Hospitalization, Other)
  Sender: FDA-Public Use
  Company Number: FR-ROCHE-2658604

PATIENT
  Age: 71 Year
  Sex: Male
  Weight: 74 kg

DRUGS (16)
  1. ATEZOLIZUMAB [Suspect]
     Active Substance: ATEZOLIZUMAB
     Indication: Non-small cell lung cancer metastatic
     Route: 042
     Dates: start: 20190724
  2. ATEZOLIZUMAB [Suspect]
     Active Substance: ATEZOLIZUMAB
     Route: 042
     Dates: start: 20190813
  3. ATEZOLIZUMAB [Suspect]
     Active Substance: ATEZOLIZUMAB
     Route: 042
     Dates: start: 20190902
  4. ATEZOLIZUMAB [Suspect]
     Active Substance: ATEZOLIZUMAB
     Route: 042
     Dates: start: 20190923
  5. TRAMADOL [Concomitant]
     Active Substance: TRAMADOL
     Indication: Pain
     Dates: start: 20191017, end: 20191106
  6. LOVENOX [Concomitant]
     Active Substance: ENOXAPARIN SODIUM
     Dates: start: 20191023, end: 20191106
  7. MOVICOL [Concomitant]
     Active Substance: POLYETHYLENE GLYCOL 3350\POTASSIUM CHLORIDE\SODIUM BICARBONATE\SODIUM CHLORIDE
     Indication: Constipation
     Dates: start: 20191023
  8. BACTRIM [Concomitant]
     Active Substance: SULFAMETHOXAZOLE\TRIMETHOPRIM
     Dates: start: 20191230, end: 20200120
  9. PRIMPERAN [Concomitant]
     Active Substance: METOCLOPRAMIDE HYDROCHLORIDE
     Indication: Prophylaxis
     Dates: start: 20191106
  10. PREDNISONE [Concomitant]
     Active Substance: PREDNISONE
  11. VITAMIN C [Concomitant]
     Active Substance: ASCORBIC ACID
  12. GEMZAR [Concomitant]
     Active Substance: GEMCITABINE HYDROCHLORIDE
     Dates: start: 20191106
  13. NAVELBINE [Concomitant]
     Active Substance: VINORELBINE TARTRATE
  14. CISPLATIN [Concomitant]
     Active Substance: CISPLATIN
  15. CARBOPLATIN [Concomitant]
     Active Substance: CARBOPLATIN
  16. COVID-19 VACCINE [Concomitant]
     Indication: Prophylaxis
     Dates: start: 20210320, end: 20210320

REACTIONS (13)
  - Bronchitis [Recovered/Resolved]
  - Headache [Recovered/Resolved]
  - Anaemia [Recovered/Resolved]
  - Chest pain [Recovered/Resolved]
  - Psoriasis [Unknown]
  - Cough [Recovered/Resolved]
  - Cholestasis [Recovered/Resolved]
  - Hepatic cytolysis [Recovered/Resolved]
  - Pneumonitis [Recovered/Resolved]
  - Pain in extremity [Recovered/Resolved]
  - Depression [Recovering/Resolving]
  - Pyrexia [Recovered/Resolved]
  - Decreased appetite [Unknown]

NARRATIVE: CASE EVENT DATE: 20190923
